FAERS Safety Report 17749712 (Version 1)
Quarter: 2020Q2

REPORT INFORMATION
  Report Type: Spontaneous
  Country: JP (occurrence: JP)
  Receive Date: 20200506
  Receipt Date: 20200506
  Transmission Date: 20200714
  Serious: Yes (Death, Hospitalization, Other)
  Sender: FDA-Public Use
  Company Number: JP-LUPIN PHARMACEUTICALS INC.-2020-01947

PATIENT
  Age: 65 Year
  Sex: Female
  Weight: 60.5 kg

DRUGS (7)
  1. BOSENTAN. [Suspect]
     Active Substance: BOSENTAN
     Indication: POOR PERIPHERAL CIRCULATION
     Dosage: 62.5 MILLIGRAM, BID
     Route: 065
  2. BOSENTAN. [Suspect]
     Active Substance: BOSENTAN
     Dosage: 125 MILLIGRAM, BID (INCREASED)
     Route: 065
  3. SILDENAFIL. [Suspect]
     Active Substance: SILDENAFIL
     Dosage: 25 MILLIGRAM, TID
     Route: 065
  4. IMATINIB MESYLATE. [Suspect]
     Active Substance: IMATINIB MESYLATE
     Indication: POOR PERIPHERAL CIRCULATION
     Dosage: 100 MILLIGRAM, QD
     Route: 065
  5. IMATINIB MESYLATE. [Suspect]
     Active Substance: IMATINIB MESYLATE
     Dosage: 200 MILLIGRAM, QD
     Route: 065
  6. BERAPROST SODIUM [Concomitant]
     Active Substance: BERAPROST SODIUM
     Indication: POOR PERIPHERAL CIRCULATION
     Dosage: 120 MILLIGRAM, QD
     Route: 065
  7. SILDENAFIL. [Suspect]
     Active Substance: SILDENAFIL
     Indication: POOR PERIPHERAL CIRCULATION
     Dosage: 20 MILLIGRAM, TID
     Route: 065

REACTIONS (4)
  - Traumatic intracranial haematoma [Fatal]
  - Right ventricular failure [Unknown]
  - Pulmonary hypertension [Unknown]
  - Drug resistance [Unknown]
